APPROVED DRUG PRODUCT: RAPIBLYK
Active Ingredient: LANDIOLOL HYDROCHLORIDE
Strength: EQ 280MG BASE/VIAL
Dosage Form/Route: POWDER;INTRAVENOUS
Application: N217202 | Product #001
Applicant: AOP HEALTH US LLC
Approved: Nov 22, 2024 | RLD: Yes | RS: Yes | Type: RX

PATENTS:
Patent 10722516 | Expires: Apr 25, 2034

EXCLUSIVITY:
Code: NCE | Date: Nov 22, 2029